FAERS Safety Report 6893619-X (Version None)
Quarter: 2010Q3

REPORT INFORMATION
  Report Type: 
  Country: None (occurrence: None)
  Receive Date: 20100731
  Receipt Date: 20091027
  Transmission Date: 20110219
  Serious: Yes (Other)
  Sender: FDA-Public Use
  Company Number: US-PFIZER INC-2009273770

PATIENT
  Sex: Male
  Weight: 78.912 kg

DRUGS (5)
  1. LIPITOR [Suspect]
     Indication: BLOOD CHOLESTEROL INCREASED
     Dosage: 20 MG, 1X/DAY
     Route: 048
  2. NEURONTIN [Suspect]
     Indication: NEURALGIA
     Dosage: 800 MG, 2X/DAY,
     Route: 048
     Dates: start: 20030101, end: 20090901
  3. NEURONTIN [Suspect]
     Dosage: 600 MG, 2X/DAY
     Route: 048
     Dates: start: 20080101
  4. TEGRETOL [Concomitant]
     Dosage: 200 MG, UNK
  5. LISINOPRIL AND HYDROCHLOROTHIAZIDE [Concomitant]
     Indication: HYPERTENSION
     Dosage: UNK

REACTIONS (3)
  - ANXIETY [None]
  - BURNING SENSATION [None]
  - CEREBROVASCULAR ACCIDENT [None]
